FAERS Safety Report 4647708-0 (Version None)
Quarter: 2005Q2

REPORT INFORMATION
  Report Type: 
  Country: None (occurrence: None)
  Receive Date: 20050427
  Receipt Date: 20050427
  Transmission Date: 20051028
  Serious: No
  Sender: FDA-Public Use
  Company Number: None

PATIENT
  Age: 50 Year
  Sex: Female
  Weight: 60.8954 kg

DRUGS (1)
  1. PARAPLATIN [Suspect]
     Dosage: 268 MG IV WKLY
     Route: 042
     Dates: start: 20050425

REACTIONS (7)
  - BLOOD PRESSURE INCREASED [None]
  - CARDIAC FLUTTER [None]
  - ERYTHEMA [None]
  - HEART RATE INCREASED [None]
  - OXYGEN SATURATION DECREASED [None]
  - RASH [None]
  - SWELLING FACE [None]
